FAERS Safety Report 15780744 (Version 1)
Quarter: 2019Q1

REPORT INFORMATION
  Report Type: Report from Study
  Country: US (occurrence: US)
  Receive Date: 20190102
  Receipt Date: 20190102
  Transmission Date: 20190417
  Serious: Yes (Other)
  Sender: FDA-Public Use
  Company Number: US-AUROBINDO-AUR-APL-2018-063764

PATIENT
  Age: 25 Month
  Sex: Male

DRUGS (4)
  1. CARBOPLATIN. [Suspect]
     Active Substance: CARBOPLATIN
     Indication: RETINOBLASTOMA
     Dosage: UNK, 2 CYCLE,OPHTHALMIC ARTERY CHEMOTHERAPY
     Route: 013
  2. HEPARIN [Concomitant]
     Active Substance: HEPARIN SODIUM
     Indication: PROPHYLAXIS
     Dosage: UNK
     Route: 065
  3. NITROUS OXIDE. [Suspect]
     Active Substance: NITROUS OXIDE
     Indication: INDUCTION OF ANAESTHESIA
     Dosage: UNK,MAX ET N2O 31.9%
     Route: 055
  4. MELPHALAN. [Suspect]
     Active Substance: MELPHALAN
     Indication: RETINOBLASTOMA
     Dosage: UNK,2 CYCLE,OPHTHALMIC ARTERY CHEMOTHERAPY
     Route: 013

REACTIONS (5)
  - Arterial thrombosis [Unknown]
  - Ischaemia [Unknown]
  - Choroidal infarction [Unknown]
  - Retinal pigment epitheliopathy [Unknown]
  - Toxicity to various agents [Unknown]
